FAERS Safety Report 21461090 (Version 11)
Quarter: 2023Q2

REPORT INFORMATION
  Report Type: Spontaneous
  Country: CA (occurrence: CA)
  Receive Date: 20221015
  Receipt Date: 20230516
  Transmission Date: 20230721
  Serious: Yes (Other)
  Sender: FDA-Public Use
  Company Number: CA-CELLTRION INC.-2021CA019187

PATIENT

DRUGS (20)
  1. INFLECTRA [Suspect]
     Active Substance: INFLIXIMAB-DYYB
     Indication: Crohn^s disease
     Dosage: 350 MG, Q 0, 2, 6, THEN EVERY 8 WEEKSWEEK 0 DOSE AND ADDITIONAL DOSE IN HOSPITAL
     Route: 042
     Dates: start: 20211107, end: 20211107
  2. INFLECTRA [Suspect]
     Active Substance: INFLIXIMAB-DYYB
     Dosage: 650 MG ADDITIONAL DOSE
     Route: 042
     Dates: start: 20211111, end: 20211111
  3. INFLECTRA [Suspect]
     Active Substance: INFLIXIMAB-DYYB
     Dosage: 400 MG Q 0, 2, 6, THEN EVERY 8 WEEKSWEEK 0 DOSE AND ADDITIONAL DOSE IN HOSPITAL
     Route: 042
     Dates: start: 20211111
  4. INFLECTRA [Suspect]
     Active Substance: INFLIXIMAB-DYYB
     Dosage: 5 MG/KG,WEEK2,6, THEN EVERY 8 WEEKS.
     Route: 042
     Dates: start: 20211122, end: 20220420
  5. INFLECTRA [Suspect]
     Active Substance: INFLIXIMAB-DYYB
     Dosage: 400 MG Q 0, 2, 6, THEN EVERY 8 WEEKSWEEK 0 DOSE AND ADDITIONAL DOSE IN HOSPITAL
     Route: 042
     Dates: start: 20211129
  6. INFLECTRA [Suspect]
     Active Substance: INFLIXIMAB-DYYB
     Dosage: 400MG ,5 MG/KG,WEEK2,6, THEN EVERY 8 WEEKS.
     Route: 042
     Dates: start: 20211228
  7. INFLECTRA [Suspect]
     Active Substance: INFLIXIMAB-DYYB
     Dosage: 400MG, 5 MG/KG,WEEK2,6, THEN EVERY 8 WEEKS.
     Route: 042
     Dates: start: 20220223
  8. INFLECTRA [Suspect]
     Active Substance: INFLIXIMAB-DYYB
     Dosage: 400 MG,5 MG/KG,WEEK2,6, THEN EVERY 8 WEEKS.
     Route: 042
     Dates: start: 20220420
  9. INFLECTRA [Suspect]
     Active Substance: INFLIXIMAB-DYYB
     Dosage: 400 MG, EVERY 6 WEEKS
     Route: 042
     Dates: start: 20220601
  10. INFLECTRA [Suspect]
     Active Substance: INFLIXIMAB-DYYB
     Dosage: 400 MG, EVERY 6 WEEKS
     Route: 042
     Dates: start: 20220601, end: 20220713
  11. INFLECTRA [Suspect]
     Active Substance: INFLIXIMAB-DYYB
     Dosage: 400 MG, EVERY 6 WEEKS
     Route: 042
     Dates: start: 20220713
  12. INFLECTRA [Suspect]
     Active Substance: INFLIXIMAB-DYYB
     Dosage: 300 MG BALANCE OF THE DOSE(SUPPOSED TO RECEIVE 250 MG)/REMAINDER OF THE DOSE TO EQUAL 10MG/KG
     Route: 042
     Dates: start: 20220719, end: 20220719
  13. INFLECTRA [Suspect]
     Active Substance: INFLIXIMAB-DYYB
     Dosage: 10 MG/KG,EVERY 6 WEEKS
     Route: 042
     Dates: start: 20220901, end: 20220901
  14. INFLECTRA [Suspect]
     Active Substance: INFLIXIMAB-DYYB
     Dosage: 10 MG/KG RESCUE DOSE ASAP
     Route: 042
     Dates: start: 20221006
  15. INFLECTRA [Suspect]
     Active Substance: INFLIXIMAB-DYYB
     Dosage: 10 MG/KG RESCUE DOSE ASAP
     Route: 042
     Dates: start: 20221006, end: 20221006
  16. INFLECTRA [Suspect]
     Active Substance: INFLIXIMAB-DYYB
     Dosage: 10 MG/KG, EVERY 4 WEEK
     Route: 042
     Dates: start: 20221110
  17. INFLECTRA [Suspect]
     Active Substance: INFLIXIMAB-DYYB
     Dosage: 10 MG/KG, EVERY 4 WEEK
     Route: 042
     Dates: start: 20230105
  18. INFLECTRA [Suspect]
     Active Substance: INFLIXIMAB-DYYB
     Dosage: 10 MG/KG (651 MG), EVERY 4 WEEK
     Route: 042
     Dates: start: 20230206
  19. INFLECTRA [Suspect]
     Active Substance: INFLIXIMAB-DYYB
     Dosage: 10 MG/KG , EVERY 4 WEEKS
     Route: 042
     Dates: start: 20230306, end: 20230306
  20. PREDNISONE [Concomitant]
     Active Substance: PREDNISONE
     Dosage: UNK

REACTIONS (10)
  - Condition aggravated [Recovering/Resolving]
  - Therapeutic response shortened [Unknown]
  - Drug level decreased [Unknown]
  - Drug ineffective [Unknown]
  - Drug level below therapeutic [Unknown]
  - C-reactive protein abnormal [Recovering/Resolving]
  - Drug level above therapeutic [Unknown]
  - Blood pressure diastolic decreased [Not Recovered/Not Resolved]
  - Incorrect dose administered [Unknown]
  - Off label use [Unknown]

NARRATIVE: CASE EVENT DATE: 20211107
